FAERS Safety Report 5334055-7 (Version None)
Quarter: 2007Q2

REPORT INFORMATION
  Report Type: 
  Country: None (occurrence: None)
  Receive Date: 20070524
  Receipt Date: 20070515
  Transmission Date: 20071010
  Serious: Yes (Other)
  Sender: FDA-Public Use
  Company Number: DZ-PFIZER INC-2007039804

PATIENT
  Age: 69 Year
  Sex: Female

DRUGS (6)
  1. AMLOR [Suspect]
     Indication: HYPERTENSION
     Route: 048
  2. AMLOR [Suspect]
     Route: 048
  3. MODURETIC 5-50 [Concomitant]
  4. SINTROM [Concomitant]
  5. DIGOXIN [Concomitant]
  6. ATENOR [Concomitant]

REACTIONS (3)
  - PAIN IN EXTREMITY [None]
  - PETECHIAE [None]
  - RASH MACULAR [None]
